FAERS Safety Report 12166129 (Version 1)
Quarter: 2016Q1

REPORT INFORMATION
  Report Type: Spontaneous
  Country: CA (occurrence: CA)
  Receive Date: 20160309
  Receipt Date: 20160309
  Transmission Date: 20160526
  Serious: Yes (Other)
  Sender: FDA-Public Use
  Company Number: CA-TEVA-641907ACC

PATIENT
  Age: 93 Year
  Sex: Male
  Weight: 71 kg

DRUGS (1)
  1. DUTASTERIDE. [Suspect]
     Active Substance: DUTASTERIDE
     Indication: HAEMATURIA
     Dosage: .5 MILLIGRAM DAILY;
     Route: 048

REACTIONS (2)
  - Haematuria [Unknown]
  - Drug effect decreased [Unknown]
